FAERS Safety Report 10073883 (Version 6)
Quarter: 2014Q4

REPORT INFORMATION
  Report Type: Spontaneous
  Country: JP (occurrence: JP)
  Receive Date: 20140411
  Receipt Date: 20141230
  Transmission Date: 20150528
  Serious: Yes (Life-Threatening, Hospitalization)
  Sender: FDA-Public Use
  Company Number: JP-ABBVIE-14P-087-1221900-00

PATIENT
  Age: 41 Year
  Sex: Female
  Weight: 62 kg

DRUGS (4)
  1. HUMIRA [Suspect]
     Active Substance: ADALIMUMAB
     Indication: RHEUMATOID ARTHRITIS
     Route: 058
     Dates: start: 20130405, end: 20130419
  2. FOLIC ACID. [Concomitant]
     Active Substance: FOLIC ACID
     Indication: VITAMIN SUPPLEMENTATION
     Route: 048
     Dates: start: 201208, end: 201304
  3. METOLATE [Suspect]
     Active Substance: METHOTREXATE
     Indication: RHEUMATOID ARTHRITIS
     Dosage: 6 MG/WEEK
     Route: 065
  4. METOLATE [Suspect]
     Active Substance: METHOTREXATE
     Route: 065
     Dates: start: 201208, end: 201304

REACTIONS (2)
  - Interstitial lung disease [Recovering/Resolving]
  - Dermatomyositis [Recovering/Resolving]

NARRATIVE: CASE EVENT DATE: 201305
